FAERS Safety Report 9829328 (Version 4)
Quarter: 2014Q2

REPORT INFORMATION
  Report Type: Report from Study
  Country: BR (occurrence: BR)
  Receive Date: 20140120
  Receipt Date: 20140402
  Transmission Date: 20141212
  Serious: Yes (Other)
  Sender: FDA-Public Use
  Company Number: BR-ROCHE-1315107

PATIENT
  Age: 29 Year
  Sex: Female
  Weight: 57 kg

DRUGS (4)
  1. ACTEMRA [Suspect]
     Indication: RHEUMATOID ARTHRITIS
     Dosage: MOST RECENT DOSE ON 07/NOV/2013
     Route: 042
     Dates: start: 20130301
  2. PREDNISONE [Concomitant]
  3. METHOTREXATE [Concomitant]
  4. OMEPRAZOL [Concomitant]

REACTIONS (5)
  - Abasia [Unknown]
  - Pain [Not Recovered/Not Resolved]
  - Asthenia [Not Recovered/Not Resolved]
  - Rheumatoid arthritis [Unknown]
  - Drug ineffective [Unknown]
